FAERS Safety Report 10335807 (Version 2)
Quarter: 2014Q3

REPORT INFORMATION
  Report Type: Spontaneous
  Country: US (occurrence: US)
  Receive Date: 20140723
  Receipt Date: 20140723
  Transmission Date: 20150326
  Serious: No
  Sender: FDA-Public Use
  Company Number: US-UNITED THERAPEUTICS-UTC-048426

PATIENT
  Sex: Female
  Weight: 46.26 kg

DRUGS (2)
  1. NYSTATIN. [Suspect]
     Active Substance: NYSTATIN
  2. REMODULIN [Suspect]
     Active Substance: TREPROSTINIL
     Indication: COR PULMONALE CHRONIC
     Dosage: 0.0599 UG/KG/MIN, CONTINUING
     Route: 058
     Dates: start: 20111222

REACTIONS (2)
  - Weight decreased [Unknown]
  - Hypersensitivity [Unknown]
